FAERS Safety Report 7093452-2 (Version None)
Quarter: 2010Q4

REPORT INFORMATION
  Report Type: 
  Country: None (occurrence: None)
  Receive Date: 20101110
  Receipt Date: 20101103
  Transmission Date: 20110411
  Serious: Yes (Other)
  Sender: FDA-Public Use
  Company Number: US-AMGEN-QUU434804

PATIENT

DRUGS (2)
  1. NPLATE [Suspect]
     Indication: IDIOPATHIC THROMBOCYTOPENIC PURPURA
     Dosage: 122 A?G, UNK
     Dates: start: 20090212
  2. NPLATE [Suspect]
     Dates: start: 20090212, end: 20090419

REACTIONS (1)
  - PLATELET COUNT ABNORMAL [None]
